FAERS Safety Report 16056364 (Version 1)
Quarter: 2019Q1

REPORT INFORMATION
  Report Type: Spontaneous
  Country: CY (occurrence: CY)
  Receive Date: 20190311
  Receipt Date: 20190311
  Transmission Date: 20190418
  Serious: Yes (Other)
  Sender: FDA-Public Use
  Company Number: CY-SA-2019SA060518

PATIENT
  Sex: Female

DRUGS (1)
  1. LEMTRADA [Suspect]
     Active Substance: ALEMTUZUMAB
     Dosage: UNK
     Route: 041
     Dates: start: 20190301, end: 20190301

REACTIONS (3)
  - Epidermolysis [Unknown]
  - Lymphopenia [Unknown]
  - Rash [Unknown]

NARRATIVE: CASE EVENT DATE: 20190301
